FAERS Safety Report 5505749-5 (Version None)
Quarter: 2007Q4

REPORT INFORMATION
  Report Type: 
  Country: None (occurrence: None)
  Receive Date: 20071102
  Receipt Date: 20071022
  Transmission Date: 20080405
  Serious: Yes (Other)
  Sender: FDA-Public Use
  Company Number: US-PFIZER INC-2007088716

PATIENT
  Age: 38 Year
  Sex: Female

DRUGS (1)
  1. ZIPRASIDONE (CAPS) [Suspect]
     Dosage: DAILY DOSE:160MG

REACTIONS (3)
  - FEELING ABNORMAL [None]
  - HYPERTENSION [None]
  - LOSS OF CONSCIOUSNESS [None]
